FAERS Safety Report 8269180-4 (Version None)
Quarter: 2012Q2

REPORT INFORMATION
  Report Type: 
  Country: None (occurrence: None)
  Receive Date: 20120409
  Receipt Date: 20120327
  Transmission Date: 20120825
  Serious: Yes (Hospitalization)
  Sender: FDA-Public Use
  Company Number: CHPA2012US005598

PATIENT
  Age: 78 Year
  Sex: Female

DRUGS (2)
  1. EXCEDRIN BACK \+ BODY CAPLETS [Suspect]
     Indication: BACK PAIN
     Dosage: 1 DF, UP TO QID
     Route: 048
     Dates: end: 20110701
  2. EXCEDRIN EXTRA STRENGTH TABLETS [Suspect]
     Indication: BACK PAIN
     Dosage: 1 DF, UP TO QID
     Route: 048
     Dates: end: 20110701

REACTIONS (6)
  - DRUG ADMINISTRATION ERROR [None]
  - OESOPHAGEAL HAEMORRHAGE [None]
  - DRUG INEFFECTIVE [None]
  - UNDERDOSE [None]
  - INCORRECT DRUG ADMINISTRATION DURATION [None]
  - HAEMATEMESIS [None]
